FAERS Safety Report 8450211-3 (Version None)
Quarter: 2012Q2

REPORT INFORMATION
  Report Type: 
  Country: None (occurrence: None)
  Receive Date: 20120620
  Receipt Date: 20120607
  Transmission Date: 20120825
  Serious: Yes (Death, Congenital Anomaly)
  Sender: FDA-Public Use
  Company Number: FR-UCBSA-036932

PATIENT
  Sex: Female

DRUGS (6)
  1. CLOBAZAM [Suspect]
     Dosage: 5 MG IN THE MORNING AND 10 MG IN THE EVENING
     Route: 064
     Dates: start: 20090201, end: 20090301
  2. CLOBAZAM [Suspect]
     Route: 064
     Dates: start: 20090301, end: 20090331
  3. KEPPRA [Suspect]
     Route: 064
     Dates: end: 20090301
  4. DEPAKENE [Suspect]
     Route: 064
     Dates: end: 20090331
  5. KEPPRA [Suspect]
     Route: 064
     Dates: start: 20090301, end: 20090331
  6. CLOBAZAM [Suspect]
     Route: 064
     Dates: end: 20090201

REACTIONS (4)
  - FOETAL GROWTH RESTRICTION [None]
  - PREMATURE BABY [None]
  - CONGENITAL TERATOMA [None]
  - FOETAL EXPOSURE DURING PREGNANCY [None]
